FAERS Safety Report 10468878 (Version 2)
Quarter: 2014Q4

REPORT INFORMATION
  Report Type: Spontaneous
  Country: DE (occurrence: DE)
  Receive Date: 20140923
  Receipt Date: 20141124
  Transmission Date: 20150528
  Serious: Yes (Hospitalization)
  Sender: FDA-Public Use
  Company Number: DE-AMGEN-DEUSP2014071538

PATIENT
  Age: 77 Year
  Sex: Female
  Weight: 62.5 kg

DRUGS (19)
  1. FURORESE                           /00032601/ [Concomitant]
     Dosage: 40 MG, BID
  2. VITAMIN D                          /00107901/ [Concomitant]
     Active Substance: ERGOCALCIFEROL
     Dosage: 1000 IU, QD
     Route: 048
  3. NEPHROTRANS [Concomitant]
     Dosage: 1 G, TID
  4. PALLADON [Concomitant]
     Active Substance: HYDROMORPHONE
     Dosage: 1.3 UNK, QD
  5. METAMIZOL                          /06276702/ [Concomitant]
     Active Substance: METAMIZOLE
     Dosage: UNK UNK, AS NECESSARY
  6. ARAVA [Concomitant]
     Active Substance: LEFLUNOMIDE
     Dosage: 10 MG, UNK
  7. HYDROMORPHONE [Concomitant]
     Active Substance: HYDROMORPHONE
     Dosage: 5 UNK, BID
  8. AMITRIPTYLINE [Concomitant]
     Active Substance: AMITRIPTYLINE
     Dosage: 25 UNK, QD
  9. CALCIUM [Concomitant]
     Active Substance: CALCIUM
     Dosage: 500 MG, QD
     Route: 048
  10. L THYROXIN HENNING [Concomitant]
     Dosage: UNK UNK, QD
  11. VOMACUR [Concomitant]
     Dosage: UNK UNK, AS NECESSARY
  12. PROLIA [Suspect]
     Active Substance: DENOSUMAB
     Indication: OSTEOPOROSIS POSTMENOPAUSAL
     Dosage: 60 MG, Q4WK
     Route: 058
     Dates: start: 20131014
  13. BICANORM [Concomitant]
     Active Substance: SODIUM BICARBONATE
     Dosage: UNK UNK, TID
  14. PREDNISOLON                        /00016201/ [Concomitant]
     Active Substance: PREDNISOLONE
     Dosage: 5 UNK, QD
  15. CALCIVIT FORTE [Concomitant]
     Dosage: UNK UNK, TID
  16. BISOPROLOL [Concomitant]
     Active Substance: BISOPROLOL
     Dosage: ONE IN MORNING HALF IN EVENING
  17. PANTOZOL [Concomitant]
     Active Substance: PANTOPRAZOLE SODIUM
     Dosage: 40 MG, QD
  18. LYRICA [Concomitant]
     Active Substance: PREGABALIN
     Dosage: 50 MG, BID
  19. MOVICOL                            /01749801/ [Concomitant]
     Dosage: UNK UNK, BID

REACTIONS (7)
  - Blood calcium decreased [Recovered/Resolved]
  - Muscle twitching [Unknown]
  - Incorrect route of drug administration [Unknown]
  - Tetany [Unknown]
  - Paraesthesia [Unknown]
  - Vasospasm [Recovered/Resolved]
  - Muscle spasms [Unknown]

NARRATIVE: CASE EVENT DATE: 20131024
